FAERS Safety Report 5475683-8 (Version None)
Quarter: 2007Q4

REPORT INFORMATION
  Report Type: 
  Country: None (occurrence: None)
  Receive Date: 20071001
  Receipt Date: 20070919
  Transmission Date: 20080405
  Serious: Yes (Death)
  Sender: FDA-Public Use
  Company Number: 07H-163-0313240-00

PATIENT

DRUGS (5)
  1. FENTANYL CITRATE [Suspect]
     Indication: PAIN
  2. NORTRIPTYLINE HCL [Concomitant]
  3. LEVETIRACETAM [Concomitant]
  4. TOPIRAMATE [Concomitant]
  5. TRAZODONE HCL [Concomitant]

REACTIONS (2)
  - ACCIDENTAL OVERDOSE [None]
  - DRUG TOXICITY [None]
